FAERS Safety Report 24980979 (Version 1)
Quarter: 2025Q1

REPORT INFORMATION
  Report Type: Spontaneous
  Country: IT (occurrence: IT)
  Receive Date: 20250218
  Receipt Date: 20250218
  Transmission Date: 20250409
  Serious: Yes (Other)
  Sender: AMGEN
  Company Number: IT-AMGEN-ITASP2025027054

PATIENT

DRUGS (1)
  1. CARFILZOMIB [Suspect]
     Active Substance: CARFILZOMIB
     Indication: Plasma cell myeloma
     Route: 065

REACTIONS (8)
  - Plasma cell myeloma [Unknown]
  - Oesophagitis [Unknown]
  - Pain [Unknown]
  - Oropharyngeal pain [Unknown]
  - Dermatitis [Unknown]
  - Fatigue [Unknown]
  - Mucosal inflammation [Unknown]
  - Gastrointestinal toxicity [Unknown]
